FAERS Safety Report 25094532 (Version 1)
Quarter: 2025Q1

REPORT INFORMATION
  Report Type: Spontaneous
  Country: US (occurrence: None)
  Receive Date: 20250318
  Receipt Date: 20250318
  Transmission Date: 20250409
  Serious: Yes (Hospitalization)
  Sender: FDA-CTU
  Company Number: None

PATIENT
  Sex: Female

DRUGS (1)
  1. TERIPARATIDE [Suspect]
     Active Substance: TERIPARATIDE
     Dosage: OTHER STRENGTH : 250MCG/ML;?FREQUENCY : DAILY;?
     Route: 058

REACTIONS (3)
  - Sneezing [None]
  - Cough [None]
  - Rib fracture [None]
